FAERS Safety Report 18610872 (Version 2)
Quarter: 2021Q1

REPORT INFORMATION
  Report Type: Spontaneous
  Country: EE (occurrence: EE)
  Receive Date: 20201214
  Receipt Date: 20210114
  Transmission Date: 20210419
  Serious: Yes (Other)
  Sender: FDA-Public Use
  Company Number: EE-BAYER-2020-266159

PATIENT
  Age: 66 Year

DRUGS (2)
  1. XOFIGO [Suspect]
     Active Substance: RADIUM RA-223 DICHLORIDE
     Dosage: UNK
     Dates: start: 20201106, end: 20201106
  2. XOFIGO [Suspect]
     Active Substance: RADIUM RA-223 DICHLORIDE
     Dosage: UNK
     Dates: start: 20201009, end: 20201009

REACTIONS (3)
  - Soft tissue mass [None]
  - Arthralgia [Not Recovered/Not Resolved]
  - Radiculopathy [None]

NARRATIVE: CASE EVENT DATE: 20201113
